APPROVED DRUG PRODUCT: CHLORZOXAZONE
Active Ingredient: CHLORZOXAZONE
Strength: 250MG
Dosage Form/Route: TABLET;ORAL
Application: A215158 | Product #001 | TE Code: AA
Applicant: SENORES PHARMACEUTICALS INC
Approved: Jul 29, 2021 | RLD: No | RS: No | Type: RX